FAERS Safety Report 9636552 (Version 2)
Quarter: 2014Q1

REPORT INFORMATION
  Report Type: Spontaneous
  Country: IT (occurrence: IT)
  Receive Date: 20131021
  Receipt Date: 20140116
  Transmission Date: 20141002
  Serious: Yes (Hospitalization)
  Sender: FDA-Public Use
  Company Number: IT-MYLANLABS-2013S1023007

PATIENT
  Age: 81 Year
  Sex: Female

DRUGS (12)
  1. METFORMIN [Suspect]
     Indication: TYPE 2 DIABETES MELLITUS
     Route: 048
     Dates: start: 20120101, end: 20130707
  2. ENALAPRIL [Suspect]
     Indication: HYPERTENSION
     Route: 048
     Dates: start: 20120101, end: 20130707
  3. LASITONE [Suspect]
     Indication: HYPERTENSION
     Route: 048
     Dates: start: 20120101, end: 20130707
  4. GLIBOMET [Suspect]
     Indication: TYPE 2 DIABETES MELLITUS
     Route: 048
     Dates: start: 20120101, end: 20130707
  5. CATAPRESSAN [Concomitant]
     Indication: PRODUCT USED FOR UNKNOWN INDICATION
  6. MODALINA [Concomitant]
     Indication: PRODUCT USED FOR UNKNOWN INDICATION
  7. AUGMENTIN [Concomitant]
     Indication: TOOTH ABSCESS
  8. PLAVIX [Concomitant]
     Indication: THROMBOSIS PROPHYLAXIS
  9. ATORVASTATIN [Concomitant]
     Indication: HYPERLIPIDAEMIA
  10. ALLOPURINOL [Concomitant]
     Indication: HYPERURICAEMIA
  11. BISOPROLOL [Concomitant]
     Indication: HYPERTENSION
  12. ACETYLSALICYLIC ACID [Concomitant]
     Indication: THROMBOSIS PROPHYLAXIS

REACTIONS (1)
  - Renal failure acute [Recovered/Resolved]
